FAERS Safety Report 22061429 (Version 2)
Quarter: 2023Q1

REPORT INFORMATION
  Report Type: Spontaneous
  Country: ES (occurrence: ES)
  Receive Date: 20230304
  Receipt Date: 20230313
  Transmission Date: 20230417
  Serious: Yes (Hospitalization, Other)
  Sender: FDA-Public Use
  Company Number: ES-002147023-NVSC2023ES030613

PATIENT
  Age: 15 Year
  Sex: Male

DRUGS (2)
  1. ARIPIPRAZOLE [Suspect]
     Active Substance: ARIPIPRAZOLE
     Indication: Schizophrenia
     Dosage: 10 MILLIGRAM, ONCE A DAY
     Route: 065
  2. RISPERIDONE [Suspect]
     Active Substance: RISPERIDONE
     Indication: Schizophrenia
     Dosage: 6 MILLIGRAM, ONCE A DAY,UP TO 6 MG, QD
     Route: 065

REACTIONS (7)
  - Condition aggravated [Recovering/Resolving]
  - Therapeutic product effect incomplete [Unknown]
  - Hyperprolactinaemia [Unknown]
  - Therapy partial responder [Unknown]
  - Somnolence [Unknown]
  - Bradyphrenia [Unknown]
  - Product use issue [Unknown]
